FAERS Safety Report 11721437 (Version 2)
Quarter: 2016Q1

REPORT INFORMATION
  Report Type: Report from Study
  Country: US (occurrence: US)
  Receive Date: 20151111
  Receipt Date: 20160121
  Transmission Date: 20160525
  Serious: No
  Sender: FDA-Public Use
  Company Number: US-AMGEN-USASL2015116277

PATIENT
  Age: 57 Year
  Sex: Male

DRUGS (2)
  1. ENBREL [Suspect]
     Active Substance: ETANERCEPT
     Indication: PSORIASIS
     Dosage: UNK UNK, TWICE WEEKLY 72-96 HRS APART FOR 3 MONTHS
     Route: 065
     Dates: start: 201406, end: 201409
  2. ENBREL [Suspect]
     Active Substance: ETANERCEPT
     Dosage: UNK, UNK, WEEKLY
     Route: 065
     Dates: start: 2015, end: 201507

REACTIONS (10)
  - Condition aggravated [Unknown]
  - Inappropriate schedule of drug administration [Unknown]
  - Skin exfoliation [Unknown]
  - Psoriasis [Unknown]
  - Skin plaque [Unknown]
  - Scab [Unknown]
  - Drug effect decreased [Unknown]
  - Device malfunction [Unknown]
  - Erythema [Unknown]
  - Skin disorder [Unknown]

NARRATIVE: CASE EVENT DATE: 201510
